FAERS Safety Report 6073345-X (Version None)
Quarter: 2009Q1

REPORT INFORMATION
  Report Type: 
  Country: None (occurrence: None)
  Receive Date: 20090211
  Receipt Date: 20090202
  Transmission Date: 20090719
  Serious: Yes (Other)
  Sender: FDA-Public Use
  Company Number: PHEH2009US01371

PATIENT
  Age: 78 Year
  Sex: Male

DRUGS (6)
  1. ZOMETA [Suspect]
     Indication: PROSTATE CANCER
     Dosage: 4 MG IV Q MONTHLY
     Dates: start: 20070101, end: 20081201
  2. LEXAPRO [Concomitant]
     Dosage: UNK
     Dates: start: 20081101
  3. ZOCOR [Concomitant]
  4. ASPIRIN [Concomitant]
  5. LISINOPRIL [Concomitant]
  6. KETOCONAZOLE [Concomitant]

REACTIONS (1)
  - OSTEONECROSIS [None]
